FAERS Safety Report 5610367-4 (Version None)
Quarter: 2008Q1

REPORT INFORMATION
  Report Type: 
  Country: None (occurrence: None)
  Receive Date: 20080128
  Receipt Date: 20080111
  Transmission Date: 20080703
  Serious: Yes (Other)
  Sender: FDA-Public Use
  Company Number: 8028995

PATIENT
  Age: 25 Year
  Sex: Female

DRUGS (3)
  1. KEPPRA [Suspect]
     Indication: EPILEPSY
  2. TEGRETP; [Concomitant]
  3. LAMICTAL [Concomitant]

REACTIONS (6)
  - ALOPECIA [None]
  - FATIGUE [None]
  - HOSTILITY [None]
  - HYPOTENSION [None]
  - QUALITY OF LIFE DECREASED [None]
  - SOMNOLENCE [None]
